FAERS Safety Report 21464982 (Version 1)
Quarter: 2022Q4

REPORT INFORMATION
  Report Type: Spontaneous
  Country: US (occurrence: None)
  Receive Date: 20221014
  Receipt Date: 20221014
  Transmission Date: 20230112
  Serious: Yes (Death)
  Sender: FDA-Public Use
  Company Number: None

PATIENT
  Sex: Female
  Weight: 81.65 kg

DRUGS (11)
  1. SUNITINIB MALATE [Suspect]
     Active Substance: SUNITINIB MALATE
     Indication: Neuroendocrine tumour
     Dosage: OTHER QUANTITY : DOSE: 7.5 MG;?FREQUENCY : DAILY;?
     Route: 048
     Dates: end: 202209
  2. CETIRIZINE HYDROCHLORIDE [Concomitant]
     Active Substance: CETIRIZINE HYDROCHLORIDE
  3. DEXAMETHASONE [Concomitant]
     Active Substance: DEXAMETHASONE
  4. HYDROMORPHONE [Concomitant]
     Active Substance: HYDROMORPHONE
  5. LITHIUM [Concomitant]
     Active Substance: LITHIUM
  6. MORPHINE [Concomitant]
     Active Substance: MORPHINE
  7. MULTIVITMIN [Concomitant]
  8. NORETHINDRONE [Concomitant]
     Active Substance: NORETHINDRONE
  9. PROCHLORPERAZINE [Concomitant]
     Active Substance: PROCHLORPERAZINE
  10. ZOFRAN [Concomitant]
     Active Substance: ONDANSETRON HYDROCHLORIDE
  11. ZYPREXA [Concomitant]
     Active Substance: OLANZAPINE

REACTIONS (2)
  - Therapy cessation [None]
  - Refusal of treatment by patient [None]
